FAERS Safety Report 7526772-5 (Version None)
Quarter: 2011Q2

REPORT INFORMATION
  Report Type: 
  Country: None (occurrence: None)
  Receive Date: 20110606
  Receipt Date: 20110508
  Transmission Date: 20111010
  Serious: No
  Sender: FDA-Public Use
  Company Number: US-BAYER-2011-041408

PATIENT
  Age: 28 Year
  Sex: Male
  Weight: 91 kg

DRUGS (1)
  1. ALEVE (CAPLET) [Suspect]
     Indication: HEADACHE
     Route: 048

REACTIONS (2)
  - NAUSEA [None]
  - HEADACHE [None]
